FAERS Safety Report 15651564 (Version 4)
Quarter: 2020Q3

REPORT INFORMATION
  Report Type: Report from Study
  Country: US (occurrence: US)
  Receive Date: 20181123
  Receipt Date: 20200725
  Transmission Date: 20201102
  Serious: Yes (Other)
  Sender: FDA-Public Use
  Company Number: US-B.I. PHARMACEUTICALS,INC./RIDGEFIELD-2018-BI-045117

PATIENT
  Age: 80 Year
  Sex: Female

DRUGS (4)
  1. OFEV [Suspect]
     Active Substance: NINTEDANIB
     Indication: IDIOPATHIC PULMONARY FIBROSIS
     Route: 048
  2. OFEV [Suspect]
     Active Substance: NINTEDANIB
     Indication: DYSPNOEA
     Route: 048
     Dates: start: 20180831
  3. OFEV [Suspect]
     Active Substance: NINTEDANIB
     Route: 048
  4. OFEV [Suspect]
     Active Substance: NINTEDANIB
     Indication: PREOPERATIVE CARE
     Route: 048
     Dates: start: 20181017

REACTIONS (29)
  - Gingival bleeding [Unknown]
  - Diarrhoea [Not Recovered/Not Resolved]
  - Influenza [Unknown]
  - Constipation [Recovered/Resolved]
  - Cough [Unknown]
  - Herpes zoster [Recovered/Resolved]
  - Sneezing [Unknown]
  - Cough [Recovered/Resolved]
  - Hepatic enzyme increased [Recovered/Resolved]
  - Gastric disorder [Not Recovered/Not Resolved]
  - Asthenia [Unknown]
  - Decreased appetite [Unknown]
  - Shoulder arthroplasty [Unknown]
  - Vomiting [Unknown]
  - Dysphonia [Unknown]
  - Fatigue [Not Recovered/Not Resolved]
  - Nausea [Recovered/Resolved]
  - Joint dislocation [Unknown]
  - Gastric disorder [Unknown]
  - Hypoaesthesia [Unknown]
  - Shoulder operation [Unknown]
  - Diarrhoea [Recovered/Resolved]
  - Abdominal discomfort [Not Recovered/Not Resolved]
  - Gastrointestinal examination abnormal [Recovered/Resolved]
  - Ligament rupture [Unknown]
  - Pain [Unknown]
  - Nausea [Not Recovered/Not Resolved]
  - Dyspnoea exertional [Unknown]
  - Vomiting [Not Recovered/Not Resolved]

NARRATIVE: CASE EVENT DATE: 20181202
